FAERS Safety Report 8800094 (Version 2)
Quarter: 2013Q2

REPORT INFORMATION
  Report Type: Report from Study
  Country: US (occurrence: US)
  Receive Date: 20120921
  Receipt Date: 20130510
  Transmission Date: 20140414
  Serious: Yes (Death, Hospitalization)
  Sender: FDA-Public Use
  Company Number: GXBR2012US001880

PATIENT
  Age: 74 Year
  Sex: Male

DRUGS (19)
  1. LISINOPRIL TABLETS [Suspect]
     Dosage: 40 MG, BID
     Route: 048
     Dates: end: 201106
  2. LISINOPRIL TABLETS [Suspect]
     Dosage: 40 MG, QD
     Route: 048
     Dates: start: 201106
  3. CARVEDILOL [Suspect]
     Dosage: 6.25 MG, BID
     Route: 048
  4. DILTIAZEM HYDROCHLORIDE ACTAVIS [Suspect]
     Dosage: 120 MG, BID
     Route: 048
     Dates: end: 201106
  5. DIGOXIN [Suspect]
     Dosage: 0.250 MG, QD
     Route: 048
     Dates: end: 201106
  6. DIGOXIN [Suspect]
     Dosage: 0.125 MG, QD
     Route: 048
     Dates: start: 201106
  7. SAXAGLIPTIN [Suspect]
     Indication: TYPE 2 DIABETES MELLITUS
     Dosage: UNK DF, UNK
     Dates: start: 20110503, end: 20110627
  8. HUMALOG [Suspect]
     Indication: TYPE 2 DIABETES MELLITUS
     Dosage: 94 IU, UNK
  9. PLACEBO [Suspect]
     Indication: TYPE 2 DIABETES MELLITUS
     Dosage: UNK DF, UNK
     Dates: start: 20110503, end: 20110627
  10. AMLODIPINE BESYLATE [Concomitant]
     Dosage: 5 MG, QD
  11. ASPIRIN ^BAYER^ [Concomitant]
     Dosage: 325 MG, QD
  12. CENTRUM [Concomitant]
     Dosage: UNK DF, UNK
  13. CRESTOR [Concomitant]
     Dosage: 10 MG, QD
  14. SYNTHROID [Concomitant]
     Dosage: 75 UG, QD
  15. PLAVIX [Concomitant]
     Dosage: 75 MG, QD
  16. VITAMIN D [Concomitant]
     Dosage: UNK DF, UNK
  17. POTASSIUM CHLORIDE [Concomitant]
     Dosage: 20 MEQ, QD
  18. FUROSEMIDE [Concomitant]
     Dosage: 20 MG, QD
  19. NIASPAN [Concomitant]
     Dosage: 500 MG, QD

REACTIONS (4)
  - Cardiac failure congestive [Fatal]
  - Nodal arrhythmia [Recovered/Resolved]
  - Hyperkalaemia [Recovered/Resolved]
  - Dyspnoea [Recovered/Resolved]
